FAERS Safety Report 9790181 (Version 1)
Quarter: 2013Q4

REPORT INFORMATION
  Report Type: Spontaneous
  Country: US (occurrence: US)
  Receive Date: 20131231
  Receipt Date: 20131231
  Transmission Date: 20140711
  Serious: Yes (Hospitalization)
  Sender: FDA-Public Use
  Company Number: US-SA-2013SA135330

PATIENT
  Age: 41 Year
  Sex: Female
  Weight: 81.7 kg

DRUGS (4)
  1. HECTOROL [Suspect]
     Indication: HYPERPARATHYROIDISM SECONDARY
     Route: 042
     Dates: start: 20131217
  2. VENOFER [Concomitant]
     Dosage: ADMINISTERED 1 CC
     Route: 042
  3. EPOGEN [Concomitant]
     Dosage: DOSE: 5000 UNITS DOSE:5000 UNIT(S)
     Route: 042
  4. NORMAL SALINE [Concomitant]
     Dosage: 600 CC
     Route: 042

REACTIONS (1)
  - Unresponsive to stimuli [Unknown]
